FAERS Safety Report 9103400 (Version 1)
Quarter: 2013Q1

REPORT INFORMATION
  Report Type: Report from Study
  Country: GB (occurrence: GB)
  Receive Date: 20130218
  Receipt Date: 20130218
  Transmission Date: 20140127
  Serious: Yes (Other)
  Sender: FDA-Public Use
  Company Number: GB-ROCHE-1188863

PATIENT
  Sex: 0

DRUGS (4)
  1. BEVACIZUMAB [Suspect]
     Indication: CORNEAL NEOVASCULARISATION
     Route: 057
  2. BEVACIZUMAB [Suspect]
     Indication: OFF LABEL USE
  3. DEXAMETHASONE [Suspect]
     Indication: CORNEAL NEOVASCULARISATION
     Route: 065
  4. DEXAMETHASONE [Suspect]
     Indication: OFF LABEL USE

REACTIONS (2)
  - Conjunctival haemorrhage [Unknown]
  - Corneal epithelium defect [Unknown]
